FAERS Safety Report 7208514-6 (Version None)
Quarter: 2011Q1

REPORT INFORMATION
  Report Type: 
  Country: None (occurrence: None)
  Receive Date: 20110104
  Receipt Date: 20101118
  Transmission Date: 20110831
  Serious: Yes (Death, Hospitalization, Other)
  Sender: FDA-Public Use
  Company Number: US-BAYER-201019555NA

PATIENT
  Sex: Female
  Weight: 120 kg

DRUGS (25)
  1. ZITHROMAX [Concomitant]
  2. ROCEPHIN [Concomitant]
     Dates: end: 20080624
  3. DIOVAN [Concomitant]
     Dosage: 4 MG (DAILY DOSE), QD, ORAL
     Route: 048
  4. IBUPROFEN [Concomitant]
  5. OCELLA [Suspect]
     Indication: PREMENSTRUAL SYNDROME
  6. DILAUDID [Concomitant]
  7. YASMIN [Suspect]
     Indication: PREMENSTRUAL SYNDROME
     Route: 048
     Dates: start: 20080410, end: 20080601
  8. SEROQUEL [Concomitant]
     Dosage: 1000 MG (DAILY DOSE), QD, ORAL
     Route: 048
  9. NORMAL SALINE [Concomitant]
  10. ALBUTEROL [Concomitant]
  11. YAZ [Suspect]
     Indication: PREMENSTRUAL SYNDROME
  12. JANUVIA [Concomitant]
     Dosage: 2 MG (DAILY DOSE), QD, ORAL
     Route: 048
  13. PROZAC [Concomitant]
     Dosage: 20 MG (DAILY DOSE), QD, ORAL
     Route: 048
  14. IBUPROFEN [Concomitant]
  15. HALDOL [Concomitant]
  16. TRAZODONE [Concomitant]
     Dosage: QHS
     Route: 048
  17. CIPRO [Concomitant]
     Dosage: 250 MG (DAILY DOSE), BID,
  18. DARVOCET [Concomitant]
     Indication: PAIN
     Dosage: 1-2 TABLETS Q4H
  19. PHENERGAN [Concomitant]
  20. TUSSIONEX [HYDROCODONE,PHENYLTOLOXAMINE] [Concomitant]
  21. PROTONIX [Concomitant]
     Dosage: 40 MG (DAILY DOSE), QD, ORAL
     Route: 048
  22. TESSALON [Concomitant]
  23. ZOFRAN [Concomitant]
  24. ALBUTEROL INHALER [Concomitant]
  25. TUSSIONEX [Concomitant]

REACTIONS (4)
  - PAIN IN EXTREMITY [None]
  - PULMONARY EMBOLISM [None]
  - RESPIRATORY ARREST [None]
  - DEEP VEIN THROMBOSIS [None]
